FAERS Safety Report 8616228-0 (Version None)
Quarter: 2012Q3

REPORT INFORMATION
  Report Type: 
  Country: None (occurrence: None)
  Receive Date: 20120823
  Receipt Date: 20120817
  Transmission Date: 20120928
  Serious: Yes (Other)
  Sender: FDA-Public Use
  Company Number: CA-ROCHE-1103842

PATIENT
  Sex: Male
  Weight: 68.1 kg

DRUGS (15)
  1. SALMON OIL [Concomitant]
  2. PREDNISONE TAB [Concomitant]
  3. HYDROCHLOROTHIAZIDE [Concomitant]
  4. VITAMIN D [Concomitant]
  5. ATENOLOL [Concomitant]
  6. RAMIPRIL [Concomitant]
  7. FENTANYL [Concomitant]
  8. MABTHERA [Suspect]
     Indication: RHEUMATOID ARTHRITIS
     Route: 042
     Dates: start: 20071011
  9. SYNTHROID [Concomitant]
  10. EZETIMIBE [Concomitant]
  11. MABTHERA [Suspect]
     Route: 042
     Dates: start: 20091119, end: 20120719
  12. DILTIAZEM HCL [Concomitant]
  13. FOLIC ACID [Concomitant]
  14. ASPIRIN [Concomitant]
  15. MORPHINE [Concomitant]

REACTIONS (5)
  - BURNING SENSATION [None]
  - EYE SWELLING [None]
  - ERYTHEMA [None]
  - MENTAL STATUS CHANGES [None]
  - SUICIDAL IDEATION [None]
